FAERS Safety Report 8188042-4 (Version None)
Quarter: 2012Q1

REPORT INFORMATION
  Report Type: 
  Country: None (occurrence: None)
  Receive Date: 20120302
  Receipt Date: 20120222
  Transmission Date: 20120608
  Serious: Yes (Disabling)
  Sender: FDA-Public Use
  Company Number: AUR-APL-2011-05376

PATIENT
  Age: 67 Year
  Sex: Female
  Weight: 50 kg

DRUGS (4)
  1. RAMIPRIL [Suspect]
     Indication: HYPERTENSION
     Dosage: 10 MG (5 MG, 2 IN 1 D), ORAL
     Route: 048
     Dates: start: 20110407, end: 20111031
  2. ZOPICLONE (ZOPICLONE) [Concomitant]
  3. ADCAL-D3 (LEKOVIG CA) [Concomitant]
  4. INDAPAMIDE (IINDAPAMIDE) [Concomitant]

REACTIONS (6)
  - COUGH [None]
  - NAIL DISORDER [None]
  - INFECTION [None]
  - DISABILITY [None]
  - CARDIAC FAILURE [None]
  - ONYCHOMYCOSIS [None]
